FAERS Safety Report 15382971 (Version 1)
Quarter: 2018Q3

REPORT INFORMATION
  Report Type: Spontaneous
  Country: US (occurrence: US)
  Receive Date: 20180913
  Receipt Date: 20180913
  Transmission Date: 20181010
  Serious: No
  Sender: FDA-Public Use
  Company Number: US-ASTELLAS-2017US038906

PATIENT
  Sex: Male

DRUGS (2)
  1. XTANDI [Suspect]
     Active Substance: ENZALUTAMIDE
     Indication: PRODUCT USED FOR UNKNOWN INDICATION
     Dosage: 4 DF, OTHER (TOOK 1 IN AM, 1 IN NOON AND 1 AT NIGHT)
     Route: 065
  2. XTANDI [Suspect]
     Active Substance: ENZALUTAMIDE
     Route: 065

REACTIONS (6)
  - Fatigue [Unknown]
  - Diarrhoea [Unknown]
  - Anxiety [Unknown]
  - Headache [Unknown]
  - Asthenia [Unknown]
  - Inappropriate schedule of drug administration [Unknown]
